FAERS Safety Report 25654629 (Version 1)
Quarter: 2025Q3

REPORT INFORMATION
  Report Type: Spontaneous
  Country: US (occurrence: None)
  Receive Date: 20250806
  Receipt Date: 20250806
  Transmission Date: 20251021
  Serious: Yes (Hospitalization)
  Sender: FDA-CTU
  Company Number: None

PATIENT
  Age: 66 Year
  Sex: Male

DRUGS (2)
  1. LENALIDOMIDE [Suspect]
     Active Substance: LENALIDOMIDE
     Indication: Follicular lymphoma
     Dosage: 20MG QD ORAL
     Route: 048
     Dates: start: 20250506, end: 20250517
  2. RITUXAN [Suspect]
     Active Substance: RITUXIMAB

REACTIONS (2)
  - Septic shock [None]
  - Hypersensitivity [None]

NARRATIVE: CASE EVENT DATE: 20250519
